FAERS Safety Report 6601701-7 (Version None)
Quarter: 2010Q1

REPORT INFORMATION
  Report Type: 
  Country: None (occurrence: None)
  Receive Date: 20100225
  Receipt Date: 20100222
  Transmission Date: 20100710
  Serious: Yes (Death, Other)
  Sender: FDA-Public Use
  Company Number: US-ROCHE-687065

PATIENT
  Age: 76 Year

DRUGS (6)
  1. TRASTUZUMAB [Suspect]
     Indication: BREAST CANCER METASTATIC
     Dosage: LOADING DOSE
     Route: 042
  2. TRASTUZUMAB [Suspect]
     Dosage: OVER 30 MIN WEEKLY
     Route: 042
  3. IXABEPILONE [Suspect]
     Indication: BREAST CANCER METASTATIC
     Dosage: OVER 1 HOUR ON DAYS 1, 8
     Route: 042
  4. CARBOPLATIN [Suspect]
     Indication: BREAST CANCER METASTATIC
     Dosage: 2 AUC OVER 1 HOUR ON DAYS 1, 8,
     Route: 042
  5. DIPHENHYDRAMINE [Concomitant]
     Dosage: ROUTE: ORAL OR INTRAVENOUS
  6. RANITIDINE [Concomitant]
     Dosage: ROUTE: ORAL OR INTRAVENOUS

REACTIONS (3)
  - DIARRHOEA [None]
  - HYPOTENSION [None]
  - SEPSIS [None]
